FAERS Safety Report 13498999 (Version 2)
Quarter: 2017Q2

REPORT INFORMATION
  Report Type: Report from Study
  Country: US (occurrence: US)
  Receive Date: 20170501
  Receipt Date: 20170522
  Transmission Date: 20170830
  Serious: Yes (Death, Hospitalization, Other)
  Sender: FDA-Public Use
  Company Number: US-AMGEN-USACT2017065615

PATIENT
  Age: 92 Year
  Sex: Male

DRUGS (10)
  1. CALCIUM CARBONATE W/VITAMIN D [Concomitant]
     Dosage: UNK
     Dates: start: 2010, end: 20170312
  2. DARBEPOETIN ALFA [Suspect]
     Active Substance: DARBEPOETIN ALFA
     Indication: ANAEMIA
     Dosage: 60 MUG, Q4WK
     Route: 058
     Dates: start: 20170303, end: 20170313
  3. DILTIAZEM. [Concomitant]
     Active Substance: DILTIAZEM
     Dosage: UNK
     Dates: start: 20170227
  4. TIROSINT [Concomitant]
     Active Substance: LEVOTHYROXINE SODIUM
     Dosage: UNK
     Dates: start: 2009
  5. MENTAX [Concomitant]
     Active Substance: BUTENAFINE HYDROCHLORIDE
     Dosage: UNK
     Dates: start: 20120307
  6. DIOVAN [Concomitant]
     Active Substance: VALSARTAN
     Dosage: UNK
     Dates: start: 20090831, end: 20170312
  7. FOSAMAX [Concomitant]
     Active Substance: ALENDRONATE SODIUM
     Dosage: UNK
     Dates: start: 2010, end: 20170312
  8. ATENOLOL. [Concomitant]
     Active Substance: ATENOLOL
     Dosage: UNK
     Dates: start: 20121026, end: 20170312
  9. OCUVITE [Concomitant]
     Active Substance: VITAMINS
     Dosage: UNK
     Dates: start: 2012, end: 20170312
  10. ASPIRIN. [Concomitant]
     Active Substance: ASPIRIN
     Dosage: UNK
     Dates: start: 20170310, end: 20170312

REACTIONS (2)
  - Ischaemic stroke [Recovered/Resolved with Sequelae]
  - Pneumonia aspiration [Fatal]

NARRATIVE: CASE EVENT DATE: 20170312
